FAERS Safety Report 9813843 (Version 2)
Quarter: 2014Q1

REPORT INFORMATION
  Report Type: Spontaneous
  Country: US (occurrence: US)
  Receive Date: 20140113
  Receipt Date: 20140113
  Transmission Date: 20141002
  Serious: No
  Sender: FDA-Public Use
  Company Number: US-GILEAD-2010-0029468

PATIENT
  Age: 50 Year
  Sex: Male

DRUGS (4)
  1. TRUVADA [Suspect]
     Indication: HIV INFECTION
     Dates: start: 20041004, end: 20100527
  2. NORVIR [Concomitant]
     Indication: HIV INFECTION
     Dates: start: 20070414
  3. LEXIVA [Concomitant]
     Indication: HIV INFECTION
     Dates: start: 20080514
  4. VITAMIN D SUPPLEMENT [Concomitant]
     Indication: VITAMIN SUPPLEMENTATION
     Dates: start: 20100226, end: 20100421

REACTIONS (3)
  - Myalgia [Unknown]
  - Bone pain [Unknown]
  - Blood alkaline phosphatase increased [Unknown]
